FAERS Safety Report 5525859-6 (Version None)
Quarter: 2007Q4

REPORT INFORMATION
  Report Type: 
  Country: None (occurrence: None)
  Receive Date: 20071126
  Receipt Date: 20071116
  Transmission Date: 20080405
  Serious: Yes (Other)
  Sender: FDA-Public Use
  Company Number: AU-AVENTIS-200715437EU

PATIENT
  Age: 74 Year
  Sex: Female

DRUGS (1)
  1. RILUTEK [Suspect]
     Route: 048
     Dates: start: 20071019, end: 20070101

REACTIONS (1)
  - CEREBROVASCULAR ACCIDENT [None]
